FAERS Safety Report 10961097 (Version 1)
Quarter: 2015Q1

REPORT INFORMATION
  Report Type: Spontaneous
  Country: US (occurrence: None)
  Receive Date: 20150326
  Receipt Date: 20150326
  Transmission Date: 20150721
  Serious: Yes (Disabling, Other)
  Sender: FDA-Public Use
  Company Number: None

PATIENT
  Age: 62 Year
  Sex: Male
  Weight: 99.79 kg

DRUGS (11)
  1. AMLODIP/BENZ [Concomitant]
  2. ANDROGEL [Concomitant]
     Active Substance: TESTOSTERONE
  3. POT CL MICRO [Concomitant]
  4. AVODART [Suspect]
     Active Substance: DUTASTERIDE
     Indication: NOCTURIA
     Route: 048
     Dates: start: 20091216, end: 20100318
  5. SPIRONOLACT [Concomitant]
  6. ATORVASTATIN [Concomitant]
     Active Substance: ATORVASTATIN
  7. OMEPRAZOLE. [Concomitant]
     Active Substance: OMEPRAZOLE
  8. ASA (ASPRIN) [Concomitant]
  9. CVS MULTIVITAMIN [Concomitant]
  10. XARELTO [Concomitant]
     Active Substance: RIVAROXABAN
  11. AMIODARONE [Concomitant]
     Active Substance: AMIODARONE

REACTIONS (3)
  - Erectile dysfunction [None]
  - Gynaecomastia [None]
  - Libido decreased [None]

NARRATIVE: CASE EVENT DATE: 20100518
